FAERS Safety Report 14715480 (Version 1)
Quarter: 2018Q2

REPORT INFORMATION
  Report Type: Spontaneous
  Country: FR (occurrence: FR)
  Receive Date: 20180404
  Receipt Date: 20180404
  Transmission Date: 20180711
  Serious: Yes (Hospitalization)
  Sender: FDA-Public Use
  Company Number: FR-ROCHE-2096170

PATIENT
  Age: 68 Year
  Sex: Male
  Weight: 75 kg

DRUGS (5)
  1. SETOFILM [Suspect]
     Active Substance: ONDANSETRON
     Indication: COLORECTAL ADENOCARCINOMA
     Route: 048
     Dates: start: 20180117, end: 20180117
  2. PLITICAN [Suspect]
     Active Substance: ALIZAPRIDE HYDROCHLORIDE
     Indication: COLORECTAL ADENOCARCINOMA
     Route: 042
     Dates: start: 20180117, end: 20180117
  3. OXALIPLATINE [Suspect]
     Active Substance: OXALIPLATIN
     Indication: COLORECTAL ADENOCARCINOMA
     Route: 042
     Dates: start: 20180117, end: 20180117
  4. SOLU-MEDROL [Suspect]
     Active Substance: METHYLPREDNISOLONE SODIUM SUCCINATE
     Indication: COLORECTAL ADENOCARCINOMA
     Dosage: STRENGTH:120 MG/2 ML
     Route: 042
     Dates: start: 20180117, end: 20180117
  5. AVASTIN [Suspect]
     Active Substance: BEVACIZUMAB
     Indication: COLORECTAL ADENOCARCINOMA
     Dosage: STRENGTH:25 MG/ML
     Route: 042
     Dates: start: 20180117, end: 20180117

REACTIONS (1)
  - Urticaria [Recovered/Resolved]

NARRATIVE: CASE EVENT DATE: 20180117
